FAERS Safety Report 25240931 (Version 2)
Quarter: 2025Q2

REPORT INFORMATION
  Report Type: Spontaneous
  Country: FR (occurrence: FR)
  Receive Date: 20250425
  Receipt Date: 20250508
  Transmission Date: 20250717
  Serious: Yes (Other)
  Sender: MYLAN
  Company Number: FR-OPELLA-2025OHG010666

PATIENT
  Sex: Female
  Weight: 40 kg

DRUGS (4)
  1. LANSOPRAZOLE [Suspect]
     Active Substance: LANSOPRAZOLE
     Indication: Product used for unknown indication
  2. LANSOPRAZOLE [Suspect]
     Active Substance: LANSOPRAZOLE
     Route: 065
  3. LANSOPRAZOLE [Suspect]
     Active Substance: LANSOPRAZOLE
     Route: 065
  4. LANSOPRAZOLE [Suspect]
     Active Substance: LANSOPRAZOLE

REACTIONS (10)
  - Drug dependence [Unknown]
  - Bedridden [Unknown]
  - Rebound effect [Unknown]
  - Hypovitaminosis [Unknown]
  - Cardiac disorder [Unknown]
  - Anxiety [Unknown]
  - Depression [Unknown]
  - Myalgia [Unknown]
  - Fatigue [Unknown]
  - Incorrect product administration duration [Unknown]
